FAERS Safety Report 11146554 (Version 2)
Quarter: 2015Q2

REPORT INFORMATION
  Report Type: Spontaneous
  Country: JP (occurrence: JP)
  Receive Date: 20150528
  Receipt Date: 20150616
  Transmission Date: 20150821
  Serious: Yes (Hospitalization)
  Sender: FDA-Public Use
  Company Number: JP-TAKEDA-2015TJP009053AA

PATIENT
  Age: 87 Year
  Sex: Male

DRUGS (2)
  1. ACTOS [Suspect]
     Active Substance: PIOGLITAZONE HYDROCHLORIDE
     Indication: DIABETES MELLITUS
     Dosage: 30 MG, UNK
     Route: 048
  2. GLUFAST [Concomitant]
     Active Substance: MITIGLINIDE
     Dosage: 30 MG, UNK
     Route: 048

REACTIONS (2)
  - Pleural effusion [Not Recovered/Not Resolved]
  - Hospitalisation [Unknown]

NARRATIVE: CASE EVENT DATE: 20150521
